FAERS Safety Report 8126418-1 (Version None)
Quarter: 2012Q1

REPORT INFORMATION
  Report Type: 
  Country: None (occurrence: None)
  Receive Date: 20120209
  Receipt Date: 20120203
  Transmission Date: 20120608
  Serious: No
  Sender: FDA-Public Use
  Company Number: US-PFIZER INC-2012034470

PATIENT
  Sex: Female
  Weight: 74.8 kg

DRUGS (5)
  1. CLINDAMYCIN PHOSPHATE [Suspect]
  2. CODEINE SULFATE [Suspect]
  3. MORPHINE SULFATE [Suspect]
  4. DEMEROL [Suspect]
  5. EVISTA [Suspect]

REACTIONS (1)
  - DRUG INTOLERANCE [None]
